FAERS Safety Report 9924509 (Version 1)
Quarter: 2014Q1

REPORT INFORMATION
  Report Type: Spontaneous
  Country: US (occurrence: None)
  Receive Date: 20140224
  Receipt Date: 20140224
  Transmission Date: 20141002
  Serious: Yes (Other)
  Sender: FDA-Public Use
  Company Number: None

PATIENT
  Age: 46 Year
  Sex: Female

DRUGS (2)
  1. VELCADE [Suspect]
     Indication: PLASMA CELL MYELOMA
     Dates: start: 201201
  2. REVLIMID [Suspect]
     Indication: PLASMA CELL MYELOMA

REACTIONS (4)
  - Fatigue [None]
  - Memory impairment [None]
  - Hypoaesthesia [None]
  - Feeling abnormal [None]
